FAERS Safety Report 25287722 (Version 5)
Quarter: 2025Q2

REPORT INFORMATION
  Report Type: Report from Study
  Country: CO (occurrence: CO)
  Receive Date: 20250509
  Receipt Date: 20250619
  Transmission Date: 20250717
  Serious: Yes (Hospitalization)
  Sender: RECORDATI
  Company Number: CO-ORPHANEU-2025003094

PATIENT
  Sex: Female
  Weight: 66 kg

DRUGS (4)
  1. ISTURISA [Suspect]
     Active Substance: OSILODROSTAT PHOSPHATE
     Indication: Cushing^s syndrome
     Dosage: 2 MG, Q12H (TITRATED TREATMENT)
     Route: 048
     Dates: start: 20250411, end: 20250505
  2. LOSARTAN [Concomitant]
     Active Substance: LOSARTAN
     Indication: Hypertension
     Dosage: 50 MILLIGRAM, QD (EVERY 24 HOURS), 50 MG STRENGTH
  3. APIXABAN [Concomitant]
     Active Substance: APIXABAN
     Indication: Deep vein thrombosis
     Dosage: 5 MG, Q12H (STRENGTH: 5 MG)
  4. FUROSEMIDE [Concomitant]
     Active Substance: FUROSEMIDE
     Indication: Hypertension
     Dosage: 40 MG (TAB), QD (EVERY 24 HOURS) (40 MG TABLET)

REACTIONS (13)
  - Rhinovirus infection [Not Recovered/Not Resolved]
  - Respiratory syncytial virus infection [Not Recovered/Not Resolved]
  - Feeding intolerance [Unknown]
  - Dehydration [Recovered/Resolved]
  - Cortisol increased [Unknown]
  - Blood potassium increased [Unknown]
  - Blood sodium increased [Recovering/Resolving]
  - Thyroid hormones increased [Unknown]
  - Nosocomial infection [Unknown]
  - Rebound effect [Unknown]
  - Hypertension [Unknown]
  - Vomiting [Recovered/Resolved]
  - Tachycardia [Unknown]

NARRATIVE: CASE EVENT DATE: 20250101
